FAERS Safety Report 4918632-0 (Version None)
Quarter: 2006Q1

REPORT INFORMATION
  Report Type: 
  Country: None (occurrence: None)
  Receive Date: 20060221
  Receipt Date: 20060221
  Transmission Date: 20060701
  Serious: Yes (Hospitalization)
  Sender: FDA-Public Use
  Company Number: None

PATIENT
  Age: 80 Year
  Sex: Female

DRUGS (10)
  1. ISOVUE-370 [Suspect]
     Indication: ANGIOPLASTY
     Dosage: 170ML  ONCE IV BOLUS
     Route: 040
     Dates: start: 20050824, end: 20050824
  2. ISOVUE-370 [Suspect]
     Indication: CARDIAC FAILURE
     Dosage: 170ML  ONCE IV BOLUS
     Route: 040
     Dates: start: 20050824, end: 20050824
  3. ISOVUE-370 [Suspect]
     Indication: CATHETERISATION CARDIAC
     Dosage: 170ML  ONCE IV BOLUS
     Route: 040
     Dates: start: 20050824, end: 20050824
  4. LISINOPRIL [Suspect]
     Indication: HYPERTENSION
     Dosage: 5MG DAILY PO
     Route: 048
     Dates: start: 20050825, end: 20050826
  5. ATENOLOL [Concomitant]
  6. LEVOTHYROXINE SODIUM [Concomitant]
  7. CIPROFLOXACIN [Concomitant]
  8. ASPIRIN [Concomitant]
  9. CLOPIDOGREL [Concomitant]
  10. EPTIFIBATIDE [Concomitant]

REACTIONS (9)
  - BRADYCARDIA [None]
  - CARDIAC PACEMAKER INSERTION [None]
  - CHEST PAIN [None]
  - DIALYSIS [None]
  - DISEASE RECURRENCE [None]
  - HYPOTENSION [None]
  - OLIGURIA [None]
  - PROCEDURAL COMPLICATION [None]
  - RENAL FAILURE [None]
